FAERS Safety Report 7524711-4 (Version None)
Quarter: 2011Q2

REPORT INFORMATION
  Report Type: 
  Country: None (occurrence: None)
  Receive Date: 20110606
  Receipt Date: 20110525
  Transmission Date: 20111010
  Serious: Yes (Hospitalization, Other)
  Sender: FDA-Public Use
  Company Number: US-AMGEN-USASP2011020788

PATIENT
  Age: 57 Year
  Sex: Female

DRUGS (1)
  1. ENBREL [Suspect]
     Indication: PSORIASIS
     Dosage: 50 MG, 2 TIMES/WK
     Route: 058
     Dates: start: 20041008

REACTIONS (11)
  - VITAMIN D DECREASED [None]
  - VISUAL ACUITY REDUCED [None]
  - LACRIMAL DISORDER [None]
  - PERIPHERAL ARTERIAL OCCLUSIVE DISEASE [None]
  - DIABETES MELLITUS [None]
  - POST PROCEDURAL INFECTION [None]
  - GANGRENE [None]
  - ABDOMINAL MASS [None]
  - VITAMIN B12 DECREASED [None]
  - EYE INFECTION [None]
  - ANAEMIA [None]
